FAERS Safety Report 14172174 (Version 4)
Quarter: 2019Q3

REPORT INFORMATION
  Report Type: Report from Study
  Country: US (occurrence: US)
  Receive Date: 20171109
  Receipt Date: 20190906
  Transmission Date: 20191004
  Serious: Yes (Other)
  Sender: FDA-Public Use
  Company Number: US-ROCHE-2013534

PATIENT
  Sex: Female

DRUGS (3)
  1. TRASTUZUMAB EMTANSINE [Suspect]
     Active Substance: ADO-TRASTUZUMAB EMTANSINE
     Indication: HER-2 POSITIVE BREAST CANCER
     Route: 042
  2. LOPERAMIDE [Concomitant]
     Active Substance: LOPERAMIDE
     Indication: PROPHYLAXIS AGAINST DIARRHOEA
  3. NERATINIB [Suspect]
     Active Substance: NERATINIB
     Indication: HER-2 POSITIVE BREAST CANCER
     Dosage: ESCALATING DOSES OF 120, 160, 200, AND 240 MG/D CONTINUOUSLY
     Route: 065

REACTIONS (11)
  - Electrolyte imbalance [Unknown]
  - Alanine aminotransferase increased [Unknown]
  - Hypertension [Unknown]
  - Thrombocytopenia [Unknown]
  - Dehydration [Unknown]
  - Hypokalaemia [Unknown]
  - Fatigue [Unknown]
  - Neutropenia [Unknown]
  - Transaminases increased [Unknown]
  - Diarrhoea [Unknown]
  - Nausea [Unknown]
